FAERS Safety Report 12261602 (Version 5)
Quarter: 2017Q4

REPORT INFORMATION
  Report Type: Spontaneous
  Country: US (occurrence: US)
  Receive Date: 20160412
  Receipt Date: 20171031
  Transmission Date: 20180320
  Serious: Yes (Hospitalization, Other)
  Sender: FDA-Public Use
  Company Number: US-AUROBINDO-AUR-APL-2016-04486

PATIENT
  Age: 16 Year
  Sex: Male

DRUGS (7)
  1. QUETIAPINE. [Suspect]
     Active Substance: QUETIAPINE
  2. ALPRAZOLAM TABLETS USP 0.5MG [Suspect]
     Active Substance: ALPRAZOLAM
     Dosage: FOUR 0.5MG ALPRAZOLAM TABLETS
     Route: 048
  3. QUETIAPINE. [Suspect]
     Active Substance: QUETIAPINE
  4. QUETIAPINE. [Suspect]
     Active Substance: QUETIAPINE
     Indication: INSOMNIA
  5. QUETIAPINE. [Suspect]
     Active Substance: QUETIAPINE
     Indication: SLEEP DISORDER
  6. ALPRAZOLAM TABLETS USP 0.5MG [Suspect]
     Active Substance: ALPRAZOLAM
     Indication: PRODUCT USED FOR UNKNOWN INDICATION
     Dosage: 0.5 MG, FOUR 0.5MG ALPRAZOLAM TABLETS
     Route: 048
  7. ALPRAZOLAM TABLETS USP 0.5MG [Suspect]
     Active Substance: ALPRAZOLAM

REACTIONS (7)
  - Sedation [Unknown]
  - Dysphoria [Recovered/Resolved]
  - Substance abuse [Unknown]
  - Drug dependence [Unknown]
  - Unresponsive to stimuli [Unknown]
  - Palpitations [Unknown]
  - Somnolence [Recovering/Resolving]
